FAERS Safety Report 7532919-7 (Version None)
Quarter: 2011Q2

REPORT INFORMATION
  Report Type: 
  Country: None (occurrence: None)
  Receive Date: 20110608
  Receipt Date: 20110531
  Transmission Date: 20111010
  Serious: Yes (Other)
  Sender: FDA-Public Use
  Company Number: AU-B.I. PHARMACEUTICALS,INC./RIDGEFIELD-2011-BP-14767YA

PATIENT
  Sex: Male

DRUGS (2)
  1. MOBIC [Suspect]
     Indication: ARTHRITIS
     Route: 065
  2. MAPELOR [Suspect]
     Route: 065

REACTIONS (3)
  - MALAISE [None]
  - DRUG INTERACTION [None]
  - DIZZINESS [None]
